FAERS Safety Report 5731106-2 (Version None)
Quarter: 2008Q2

REPORT INFORMATION
  Report Type: 
  Country: None (occurrence: None)
  Receive Date: 20080505
  Receipt Date: 20080420
  Transmission Date: 20081010
  Serious: Yes (Other)
  Sender: FDA-Public Use
  Company Number: 2008SP005292

PATIENT
  Age: 64 Year
  Sex: Female
  Weight: 72.5755 kg

DRUGS (11)
  1. MIRALAX [Suspect]
     Indication: CONSTIPATION
     Dosage: 17 GM;ONCE;PO
     Route: 048
     Dates: start: 20080311, end: 20080311
  2. CARDIZEM [Concomitant]
  3. LISINOPRIL [Concomitant]
  4. PREDNISONE TAB [Concomitant]
  5. SYNTHROID [Concomitant]
  6. INDERAL [Concomitant]
  7. ESTRADIOL [Concomitant]
  8. CYMBALTA [Concomitant]
  9. LOVASTATIN [Concomitant]
  10. PERCOCET [Concomitant]
  11. CLONAZEPAM [Concomitant]

REACTIONS (3)
  - DRUG HYPERSENSITIVITY [None]
  - DYSPNOEA [None]
  - SPEECH DISORDER [None]
